FAERS Safety Report 17571287 (Version 2)
Quarter: 2020Q3

REPORT INFORMATION
  Report Type: Spontaneous
  Country: CA (occurrence: CA)
  Receive Date: 20200323
  Receipt Date: 20200720
  Transmission Date: 20201102
  Serious: Yes (Life-Threatening, Hospitalization)
  Sender: FDA-Public Use
  Company Number: CA-TEVA-2020-CA-1210940

PATIENT
  Age: 85 Year
  Sex: Male

DRUGS (4)
  1. CEPHALEXIN MONOHYDRATE. [Suspect]
     Active Substance: CEPHALEXIN MONOHYDRATE
     Indication: LOCALISED INFECTION
     Route: 048
  2. ADALAT XL ? SRT 30MG [Concomitant]
  3. NIFEDIPINE. [Concomitant]
     Active Substance: NIFEDIPINE
  4. INVANZ [Suspect]
     Active Substance: ERTAPENEM SODIUM
     Indication: LOCALISED INFECTION
     Route: 042

REACTIONS (13)
  - Abdominal discomfort [Unknown]
  - Headache [Unknown]
  - Dyspnoea [Unknown]
  - Drug interaction [Unknown]
  - Dehydration [Unknown]
  - Diarrhoea [Unknown]
  - Hypersomnia [Unknown]
  - Lethargy [Unknown]
  - Loss of consciousness [Unknown]
  - Malaise [Unknown]
  - Asthenia [Unknown]
  - Hypotension [Unknown]
  - Unresponsive to stimuli [Unknown]
